FAERS Safety Report 5530881-X (Version None)
Quarter: 2007Q4

REPORT INFORMATION
  Report Type: 
  Country: None (occurrence: None)
  Receive Date: 20071130
  Receipt Date: 20071116
  Transmission Date: 20080405
  Serious: Yes (Other)
  Sender: FDA-Public Use
  Company Number: GB-RANBAXY-2007RR-11539

PATIENT

DRUGS (4)
  1. FLUOXETINE [Suspect]
     Indication: DEPRESSION
     Dosage: 10 MG, UNK
     Route: 064
  2. BUDESONIDE [Suspect]
     Indication: ASTHMA
     Dosage: 1 DF, BID
     Route: 064
     Dates: start: 20051001
  3. FORMOTEROL FUMARATE [Suspect]
     Indication: ASTHMA
     Dosage: 1 DF, BID
     Route: 064
     Dates: start: 20051001
  4. SALBUTAMOL TABLETS BP 2MG [Suspect]
     Indication: ASTHMA
     Route: 064

REACTIONS (1)
  - SEPSIS [None]
